FAERS Safety Report 22656538 (Version 3)
Quarter: 2023Q4

REPORT INFORMATION
  Report Type: Report from Study
  Country: US (occurrence: US)
  Receive Date: 20230630
  Receipt Date: 20231225
  Transmission Date: 20240110
  Serious: No
  Sender: FDA-Public Use
  Company Number: US-ACADIA PHARMACEUTICALS INC.-ACA-2023-TRF-002215

PATIENT
  Age: 6 Year
  Sex: Female

DRUGS (9)
  1. DAYBUE [Suspect]
     Active Substance: TROFINETIDE
     Indication: Rett syndrome
     Dosage: 30 MILLILITER, BID, G TUBE
  2. OLOPATADINE [Concomitant]
     Active Substance: OLOPATADINE
     Route: 047
  3. CYPROHEPTADINE [Concomitant]
     Active Substance: CYPROHEPTADINE
  4. OFLOXACIN [Concomitant]
     Active Substance: OFLOXACIN
  5. ERYTHROMYCIN [Concomitant]
     Active Substance: ERYTHROMYCIN
     Route: 048
  6. MIRALAX [Concomitant]
     Active Substance: POLYETHYLENE GLYCOL 3350
  7. ATROPINE [Concomitant]
     Active Substance: ATROPINE\ATROPINE SULFATE
  8. SCOPOLAMINE HYDROCHLORIDE [Concomitant]
     Active Substance: SCOPOLAMINE HYDROCHLORIDE
  9. ZYRTEC [Concomitant]
     Active Substance: CETIRIZINE HYDROCHLORIDE

REACTIONS (10)
  - Retching [Not Recovered/Not Resolved]
  - Influenza like illness [Unknown]
  - Retching [Unknown]
  - Dyskinesia [Recovered/Resolved]
  - Drooling [Recovering/Resolving]
  - Mood altered [Unknown]
  - Eyelid cyst removal [Not Recovered/Not Resolved]
  - Hordeolum [Not Recovered/Not Resolved]
  - Diarrhoea [Recovering/Resolving]
  - Vomiting [Unknown]

NARRATIVE: CASE EVENT DATE: 20230529
